FAERS Safety Report 9199460 (Version 1)
Quarter: 2013Q1

REPORT INFORMATION
  Report Type: Spontaneous
  Country: US (occurrence: None)
  Receive Date: 20130326
  Receipt Date: 20130326
  Transmission Date: 20140127
  Serious: Yes (Disabling, Other)
  Sender: FDA-Public Use
  Company Number: ACO_34869_2013

PATIENT
  Sex: Female

DRUGS (1)
  1. AMPYRA (DALFAMPRIDINE) TABLET, 10MG [Suspect]
     Indication: PRODUCT USED FOR UNKNOWN INDICATION
     Route: 048
     Dates: start: 20120627

REACTIONS (5)
  - Dysstasia [None]
  - Diplegia [None]
  - Gait disturbance [None]
  - Joint injury [None]
  - Multiple sclerosis relapse [None]
